FAERS Safety Report 6752748-1 (Version None)
Quarter: 2010Q2

REPORT INFORMATION
  Report Type: 
  Country: None (occurrence: None)
  Receive Date: 20100528
  Receipt Date: 20100514
  Transmission Date: 20101027
  Serious: Yes (Other)
  Sender: FDA-Public Use
  Company Number: 012003

PATIENT
  Sex: Female

DRUGS (2)
  1. LACOSAMIDE [Suspect]
     Indication: EPILEPSY
     Dosage: 100 MG BID ORAL
     Route: 048
     Dates: start: 20091101
  2. DROSPERINONE W/ETHINYLESTADIOL [Concomitant]

REACTIONS (5)
  - DRUG EXPOSURE DURING PREGNANCY [None]
  - DYSMENORRHOEA [None]
  - IRRITABILITY [None]
  - MOOD SWINGS [None]
  - PREGNANCY ON ORAL CONTRACEPTIVE [None]
